FAERS Safety Report 6790839-X (Version None)
Quarter: 2010Q2

REPORT INFORMATION
  Report Type: 
  Country: None (occurrence: None)
  Receive Date: 20100624
  Receipt Date: 20100615
  Transmission Date: 20101027
  Serious: Yes (Life-Threatening)
  Sender: FDA-Public Use
  Company Number: A0863076A

PATIENT
  Age: 54 Year
  Sex: Male

DRUGS (5)
  1. VOTRIENT [Suspect]
     Dosage: 800MG PER DAY
     Route: 048
     Dates: start: 20100427, end: 20100527
  2. REGLAN [Concomitant]
  3. MEGACE [Concomitant]
  4. METHYLPHENIDATE [Concomitant]
  5. IBUPROFEN OTC [Concomitant]

REACTIONS (2)
  - HAEMOPTYSIS [None]
  - LUNG DISORDER [None]
